FAERS Safety Report 7096682-9 (Version None)
Quarter: 2010Q4

REPORT INFORMATION
  Report Type: 
  Country: None (occurrence: None)
  Receive Date: 20101111
  Receipt Date: 20101025
  Transmission Date: 20110411
  Serious: Yes (Hospitalization)
  Sender: FDA-Public Use
  Company Number: US-BAYER-201015378NA

PATIENT
  Age: 44 Year
  Sex: Female
  Weight: 77 kg

DRUGS (9)
  1. YASMIN [Suspect]
     Indication: MUSCLE SPASMS
     Route: 048
     Dates: start: 20050701, end: 20070222
  2. ACETAMINOPHEN [Concomitant]
     Indication: HEADACHE
     Dosage: VARIOUS
  3. IBUPROFEN [Concomitant]
     Indication: PAIN IN EXTREMITY
     Dosage: VARIOUS
  4. VENLAFAXINE [Concomitant]
     Indication: HOT FLUSH
  5. PHENERGAN [Concomitant]
  6. DEMEROL [Concomitant]
  7. MORPHIN [Concomitant]
     Indication: PAIN MANAGEMENT
  8. RESTORIL [Concomitant]
  9. LORCET-HD [Concomitant]

REACTIONS (4)
  - DEEP VEIN THROMBOSIS [None]
  - OEDEMA PERIPHERAL [None]
  - PAIN IN EXTREMITY [None]
  - SKIN DISCOLOURATION [None]
